FAERS Safety Report 20564885 (Version 1)
Quarter: 2022Q1

REPORT INFORMATION
  Report Type: Spontaneous
  Country: US (occurrence: US)
  Receive Date: 20220308
  Receipt Date: 20220308
  Transmission Date: 20220424
  Serious: No
  Sender: FDA-Public Use
  Company Number: US-ALLERGAN-2106077US

PATIENT
  Sex: Female

DRUGS (2)
  1. ESTRADIOL [Suspect]
     Active Substance: ESTRADIOL
     Indication: Vulvovaginal dryness
     Dosage: 1 G, 2-3 TIMES PER WEEK
     Route: 067
     Dates: start: 20210205
  2. ESTRADIOL [Suspect]
     Active Substance: ESTRADIOL
     Dosage: 1 G, QPM
     Route: 067
     Dates: start: 20210129

REACTIONS (4)
  - Peripheral swelling [Not Recovered/Not Resolved]
  - Tenderness [Not Recovered/Not Resolved]
  - Vulvovaginal swelling [Not Recovered/Not Resolved]
  - Breast pain [Not Recovered/Not Resolved]
